FAERS Safety Report 12916086 (Version 2)
Quarter: 2017Q2

REPORT INFORMATION
  Report Type: Spontaneous
  Country: US (occurrence: US)
  Receive Date: 20161104
  Receipt Date: 20170602
  Transmission Date: 20170830
  Serious: Yes (Other)
  Sender: FDA-Public Use
  Company Number: US-BAYER-2016-210684

PATIENT
  Age: 83 Year
  Sex: Male
  Weight: 78 kg

DRUGS (6)
  1. ALKA-SELTZER PLUS SEVERE SINUS CONGESTION AND COUGH DAY AND NIGHT [Suspect]
     Active Substance: ACETAMINOPHEN\DEXTROMETHORPHAN HYDROBROMIDE\DOXYLAMINE SUCCINATE\PHENYLEPHRINE
     Indication: HYPERSENSITIVITY
     Dosage: 1 DF, TID
     Route: 048
     Dates: start: 20161030, end: 20161101
  2. ALKA-SELTZER PLUS SEVERE SINUS CONGESTION AND COUGH DAY AND NIGHT [Suspect]
     Active Substance: ACETAMINOPHEN\DEXTROMETHORPHAN HYDROBROMIDE\DOXYLAMINE SUCCINATE\PHENYLEPHRINE
     Indication: VIRAL UPPER RESPIRATORY TRACT INFECTION
  3. BAYER LOW DOSE [Suspect]
     Active Substance: ASPIRIN
     Dosage: 1 DF, QD
     Route: 048
     Dates: start: 2011
  4. ALKA-SELTZER PLUS SEVERE SINUS CONGESTION AND COUGH DAY AND NIGHT [Suspect]
     Active Substance: ACETAMINOPHEN\DEXTROMETHORPHAN HYDROBROMIDE\DOXYLAMINE SUCCINATE\PHENYLEPHRINE
     Indication: HYPERSENSITIVITY
     Dosage: UNK
     Dates: start: 20161030, end: 20161101
  5. ACCUPRIL [Concomitant]
     Active Substance: QUINAPRIL HYDROCHLORIDE
  6. ALKA-SELTZER PLUS SEVERE SINUS CONGESTION AND COUGH DAY AND NIGHT [Suspect]
     Active Substance: ACETAMINOPHEN\DEXTROMETHORPHAN HYDROBROMIDE\DOXYLAMINE SUCCINATE\PHENYLEPHRINE
     Indication: VIRAL UPPER RESPIRATORY TRACT INFECTION

REACTIONS (8)
  - Choking [None]
  - Off label use [Unknown]
  - Increased tendency to bruise [Recovered/Resolved]
  - Wrong technique in product usage process [None]
  - Incorrect drug administration duration [None]
  - Retching [Recovered/Resolved]
  - Product use complaint [None]
  - Inappropriate prescribing [Unknown]

NARRATIVE: CASE EVENT DATE: 2011
